FAERS Safety Report 8586136-2 (Version None)
Quarter: 2012Q3

REPORT INFORMATION
  Report Type: 
  Country: None (occurrence: None)
  Receive Date: 20120810
  Receipt Date: 20120801
  Transmission Date: 20120928
  Serious: Yes (Other)
  Sender: FDA-Public Use
  Company Number: PL-ROCHE-1096479

PATIENT
  Sex: Female
  Weight: 63 kg

DRUGS (5)
  1. POLPRAZOL [Concomitant]
     Indication: PROPHYLAXIS
     Route: 048
  2. KETOPROFEN [Concomitant]
     Indication: RHEUMATOID ARTHRITIS
     Route: 048
  3. FOLIC ACID [Concomitant]
     Indication: RHEUMATOID ARTHRITIS
     Route: 048
  4. MABTHERA [Suspect]
     Indication: RHEUMATOID ARTHRITIS
     Route: 042
     Dates: start: 20120629, end: 20120629
  5. METHOTREXATE [Concomitant]
     Indication: RHEUMATOID ARTHRITIS
     Route: 048

REACTIONS (4)
  - OEDEMA PERIPHERAL [None]
  - LYMPHADENOPATHY [None]
  - PYREXIA [None]
  - INFLAMMATORY MARKER INCREASED [None]
